FAERS Safety Report 12538936 (Version 1)
Quarter: 2016Q3

REPORT INFORMATION
  Report Type: Spontaneous
  Country: US (occurrence: None)
  Receive Date: 20160707
  Receipt Date: 20160707
  Transmission Date: 20161109
  Serious: Yes (Death, Hospitalization)
  Sender: FDA-Public Use
  Company Number: None

PATIENT
  Age: 15 Year
  Sex: Female
  Weight: 87.5 kg

DRUGS (4)
  1. MITOXANTRONE HYDROCHLORIDE. [Concomitant]
     Active Substance: MITOXANTRONE HYDROCHLORIDE
     Dates: end: 20160602
  2. ETOPOSIDE (VP-16) [Suspect]
     Active Substance: ETOPOSIDE
     Dates: end: 20160312
  3. DAUNORUBICIN [Suspect]
     Active Substance: DAUNORUBICIN
     Dates: end: 20160125
  4. CYTARABINE. [Suspect]
     Active Substance: CYTARABINE
     Dates: end: 20160531

REACTIONS (10)
  - Genital lesion [None]
  - Pain [None]
  - Pseudomonas test positive [None]
  - Hypotension [None]
  - Erythema [None]
  - Necrotising fasciitis [None]
  - Oedema [None]
  - Tachypnoea [None]
  - Sepsis [None]
  - Gram stain positive [None]

NARRATIVE: CASE EVENT DATE: 20160612
